APPROVED DRUG PRODUCT: VASOCIDIN
Active Ingredient: PREDNISOLONE ACETATE; SULFACETAMIDE SODIUM
Strength: 0.5%;10%
Dosage Form/Route: OINTMENT;OPHTHALMIC
Application: A088791 | Product #001
Applicant: NOVARTIS PHARMACEUTICALS CORP
Approved: Oct 5, 1984 | RLD: No | RS: No | Type: DISCN